FAERS Safety Report 9089570 (Version 1)
Quarter: 2013Q1

REPORT INFORMATION
  Report Type: Spontaneous
  Country: US (occurrence: US)
  Receive Date: 20130201
  Receipt Date: 20130201
  Transmission Date: 20140127
  Serious: No
  Sender: FDA-Public Use
  Company Number: US-ABBOTT-12P-163-1020888-00

PATIENT
  Sex: Female

DRUGS (1)
  1. HUMIRA [Suspect]
     Indication: RHEUMATOID ARTHRITIS
     Dates: start: 2011

REACTIONS (4)
  - Unevaluable event [Recovered/Resolved]
  - Incorrect storage of drug [Recovered/Resolved]
  - Poor quality drug administered [Recovered/Resolved]
  - Incorrect dose administered [Unknown]
